FAERS Safety Report 12499156 (Version 2)
Quarter: 2016Q3

REPORT INFORMATION
  Report Type: Spontaneous
  Country: US (occurrence: US)
  Receive Date: 20160627
  Receipt Date: 20160701
  Transmission Date: 20161109
  Serious: Yes (Other)
  Sender: FDA-Public Use
  Company Number: PHEH2016US015064

PATIENT
  Sex: Female
  Weight: 59.86 kg

DRUGS (2)
  1. LETROZOLE. [Suspect]
     Active Substance: LETROZOLE
     Indication: PRODUCT USED FOR UNKNOWN INDICATION
     Dosage: UNK, QD
     Route: 065
  2. PALBOCICLIB [Suspect]
     Active Substance: PALBOCICLIB
     Indication: BREAST CANCER METASTATIC
     Dosage: 75 MG,(DAYS 1-21 Q28 DAYS)
     Route: 048
     Dates: start: 20150714, end: 20160504

REACTIONS (3)
  - Metastasis [Unknown]
  - Disease progression [Unknown]
  - Metastases to spine [Unknown]
